FAERS Safety Report 17432977 (Version 4)
Quarter: 2020Q1

REPORT INFORMATION
  Report Type: Spontaneous
  Country: EG (occurrence: EG)
  Receive Date: 20200219
  Receipt Date: 20200320
  Transmission Date: 20200409
  Serious: Yes (Other)
  Sender: FDA-Public Use
  Company Number: EG-ROCHE-2546912

PATIENT
  Sex: Female
  Weight: 110 kg

DRUGS (3)
  1. OCREVUS [Suspect]
     Active Substance: OCRELIZUMAB
     Route: 042
     Dates: start: 20200217
  2. OCREVUS [Suspect]
     Active Substance: OCRELIZUMAB
     Indication: MULTIPLE SCLEROSIS
     Route: 042
     Dates: start: 2019
  3. OCREVUS [Suspect]
     Active Substance: OCRELIZUMAB
     Dosage: 1ST INFUSION
     Route: 042
     Dates: start: 20200210

REACTIONS (4)
  - Weight increased [Not Recovered/Not Resolved]
  - Multiple sclerosis [Recovered/Resolved]
  - Infusion related reaction [Not Recovered/Not Resolved]
  - Body temperature increased [Unknown]

NARRATIVE: CASE EVENT DATE: 201911
